FAERS Safety Report 16727213 (Version 1)
Quarter: 2019Q3

REPORT INFORMATION
  Report Type: Spontaneous
  Country: US (occurrence: US)
  Receive Date: 20190822
  Receipt Date: 20190822
  Transmission Date: 20191005
  Serious: No
  Sender: FDA-Public Use
  Company Number: US-ELI_LILLY_AND_COMPANY-US201908006721

PATIENT
  Sex: Male

DRUGS (2)
  1. NOVOLOG [Concomitant]
     Active Substance: INSULIN ASPART
     Indication: DIABETES MELLITUS
  2. HUMALOG [Suspect]
     Active Substance: INSULIN LISPRO
     Indication: DIABETES MELLITUS
     Dosage: UNK UNK, UNKNOWN
     Route: 058
     Dates: start: 1999

REACTIONS (8)
  - Blood glucose increased [Unknown]
  - Hypoacusis [Unknown]
  - Irritability [Unknown]
  - Incorrect dose administered [Unknown]
  - Asthenia [Unknown]
  - Drug ineffective [Unknown]
  - Hiccups [Unknown]
  - Feeling abnormal [Unknown]
